FAERS Safety Report 15284758 (Version 1)
Quarter: 2018Q3

REPORT INFORMATION
  Report Type: Spontaneous
  Country: US (occurrence: US)
  Receive Date: 20180801
  Receipt Date: 20180801
  Transmission Date: 20181010
  Serious: Yes (Other)
  Sender: FDA-Public Use
  Company Number: None

PATIENT
  Age: 47 Year
  Sex: Male
  Weight: 93.9 kg

DRUGS (3)
  1. DIPHENHYDRAMINE. [Concomitant]
     Active Substance: DIPHENHYDRAMINE
     Dates: start: 20180801, end: 20180801
  2. RITUXAN [Suspect]
     Active Substance: RITUXIMAB
     Route: 041
     Dates: start: 20180801, end: 20180801
  3. HYDROCORTISONE SUCCINATE [Concomitant]
     Dates: start: 20180801, end: 20180801

REACTIONS (1)
  - Pruritus [None]

NARRATIVE: CASE EVENT DATE: 20180801
